FAERS Safety Report 4461080-0 (Version None)
Quarter: 2004Q3

REPORT INFORMATION
  Report Type: 
  Country: None (occurrence: None)
  Receive Date: 20040916
  Receipt Date: 20040512
  Transmission Date: 20050211
  Serious: Yes (Hospitalization, Other)
  Sender: FDA-Public Use
  Company Number: JP-BRISTOL-MYERS SQUIBB COMPANY-12590147

PATIENT
  Age: 80 Year
  Sex: Male

DRUGS (11)
  1. GATIFLO TABS 100 MG [Suspect]
     Indication: BRONCHITIS ACUTE
     Route: 048
     Dates: start: 20040507, end: 20040509
  2. THEOLONG [Concomitant]
     Route: 048
     Dates: start: 20031209
  3. LYSOZYME HCL [Concomitant]
     Route: 048
     Dates: start: 20031209
  4. NORPACE [Concomitant]
     Route: 048
     Dates: start: 20031209
  5. ZANTAC [Concomitant]
     Route: 048
     Dates: start: 20031209
  6. SEREVENT [Concomitant]
     Route: 055
     Dates: start: 20040328
  7. INDOMETHACIN [Concomitant]
     Route: 062
     Dates: start: 20040203
  8. ROCEPHIN [Concomitant]
     Route: 041
     Dates: start: 20040507, end: 20040507
  9. SALBUTAMOL SULPHATE [Concomitant]
     Route: 055
     Dates: start: 20040507, end: 20040507
  10. BISOLVON [Concomitant]
     Route: 055
     Dates: start: 20040507, end: 20040507
  11. SODIUM CHLORIDE INJ [Concomitant]
     Route: 041
     Dates: start: 20040507, end: 20040507

REACTIONS (2)
  - HYPOGLYCAEMIA [None]
  - LIVER DISORDER [None]
